FAERS Safety Report 14141228 (Version 1)
Quarter: 2017Q4

REPORT INFORMATION
  Report Type: Spontaneous
  Country: US (occurrence: US)
  Receive Date: 20171030
  Receipt Date: 20171030
  Transmission Date: 20180321
  Serious: Yes (Other)
  Sender: FDA-Public Use
  Company Number: US-PFIZER INC-2017462279

PATIENT
  Sex: Male

DRUGS (1)
  1. GABAPENTIN. [Suspect]
     Active Substance: GABAPENTIN
     Dosage: 600 MG, 1X/DAY

REACTIONS (6)
  - Mental impairment [Unknown]
  - Tremor [Unknown]
  - Gait disturbance [Unknown]
  - Fall [Unknown]
  - Dizziness [Unknown]
  - Impaired driving ability [Unknown]
